FAERS Safety Report 8501158-5 (Version None)
Quarter: 2012Q3

REPORT INFORMATION
  Report Type: 
  Country: None (occurrence: None)
  Receive Date: 20120710
  Receipt Date: 20120629
  Transmission Date: 20120928
  Serious: Yes (Hospitalization)
  Sender: FDA-Public Use
  Company Number: US-ACTELION-A-NJ2011-49432

PATIENT

DRUGS (3)
  1. TRACLEER [Suspect]
     Indication: PULMONARY ARTERIAL HYPERTENSION
     Dosage: UNK
     Route: 048
  2. ADCIRCA [Concomitant]
  3. POTASSIUM CHLORIDE [Concomitant]

REACTIONS (6)
  - BLOOD POTASSIUM ABNORMAL [None]
  - LUNG DISORDER [None]
  - DYSPNOEA [None]
  - OEDEMA PERIPHERAL [None]
  - ASTHENIA [None]
  - WEIGHT INCREASED [None]
